FAERS Safety Report 7591694-0 (Version None)
Quarter: 2011Q3

REPORT INFORMATION
  Report Type: 
  Country: None (occurrence: None)
  Receive Date: 20110706
  Receipt Date: 20110615
  Transmission Date: 20111222
  Serious: Yes (Hospitalization, Other)
  Sender: FDA-Public Use
  Company Number: US-BAYER-201032287NA

PATIENT
  Age: 25 Year
  Sex: Female
  Weight: 86.168 kg

DRUGS (7)
  1. TRAMADOL HCL [Concomitant]
  2. HYDROXYCHLOROQUINE SULFATE [Concomitant]
  3. WELLBUTRIN [Concomitant]
  4. YAZ [Suspect]
     Indication: CONTRACEPTION
     Dosage: 1 DF, QD
     Route: 048
     Dates: start: 20081201, end: 20090101
  5. YAZ [Suspect]
     Indication: ENDOMETRIOSIS
  6. PREDNISONE [Concomitant]
  7. IBUPROFEN [Concomitant]

REACTIONS (3)
  - CHOLELITHIASIS [None]
  - GALLBLADDER DISORDER [None]
  - CHEST PAIN [None]
